FAERS Safety Report 14291625 (Version 1)
Quarter: 2017Q4

REPORT INFORMATION
  Report Type: Spontaneous
  Country: US (occurrence: US)
  Receive Date: 20171215
  Receipt Date: 20171215
  Transmission Date: 20180321
  Serious: No
  Sender: FDA-Public Use
  Company Number: US-LNK INTERNATIONAL, INC.-2037229

PATIENT
  Age: 60 Year
  Sex: Female

DRUGS (3)
  1. FLUOXETINE [Concomitant]
     Active Substance: FLUOXETINE HYDROCHLORIDE
  2. MIRALAX [Concomitant]
     Active Substance: POLYETHYLENE GLYCOL 3350
  3. BISACODYL ENTERIC COATED [Suspect]
     Active Substance: BISACODYL
     Indication: COLONOSCOPY
     Dates: start: 20171016, end: 20171016

REACTIONS (4)
  - Abdominal pain [None]
  - Diarrhoea [None]
  - Headache [None]
  - Abdominal pain upper [None]
